FAERS Safety Report 4725980-6 (Version None)
Quarter: 2005Q3

REPORT INFORMATION
  Report Type: 
  Country: None (occurrence: None)
  Receive Date: 20050727
  Receipt Date: 20050726
  Transmission Date: 20060218
  Serious: Yes (Hospitalization)
  Sender: FDA-Public Use
  Company Number: FR-GLAXOSMITHKLINE-B0388691A

PATIENT
  Age: 73 Year
  Sex: Male

DRUGS (7)
  1. SERETIDE [Suspect]
     Indication: BRONCHITIS
     Dosage: 3PUFF PER DAY
     Route: 055
     Dates: start: 20050610, end: 20050705
  2. PREVISCAN [Suspect]
     Dosage: 10MG PER DAY
     Route: 048
     Dates: start: 20050502, end: 20050705
  3. EXOMUC [Suspect]
     Indication: BRONCHITIS
     Dosage: 2UNIT PER DAY
     Route: 048
     Dates: start: 20050610, end: 20050705
  4. CEFUROXIME AXETIL [Concomitant]
     Indication: BRONCHITIS
     Route: 065
     Dates: start: 20050524
  5. LEVOCETIRIZINE [Concomitant]
     Indication: BRONCHITIS
     Dates: start: 20050610
  6. CARBOCYSTEINE [Concomitant]
     Indication: BRONCHITIS
     Dates: start: 20050524
  7. DIGOXIN [Concomitant]
     Route: 065
     Dates: start: 20050502

REACTIONS (5)
  - DRUG INTERACTION [None]
  - DUODENAL ULCER [None]
  - GASTROINTESTINAL HAEMORRHAGE [None]
  - HYPOALBUMINAEMIA [None]
  - INTERNATIONAL NORMALISED RATIO FLUCTUATION [None]
